FAERS Safety Report 16213686 (Version 5)
Quarter: 2020Q3

REPORT INFORMATION
  Report Type: Spontaneous
  Country: US (occurrence: US)
  Receive Date: 20190418
  Receipt Date: 20200903
  Transmission Date: 20201102
  Serious: Yes (Hospitalization, Other)
  Sender: FDA-Public Use
  Company Number: US-GILEAD-2019-0402846

PATIENT
  Age: 27 Year
  Sex: Male

DRUGS (7)
  1. ZIAGEN [Concomitant]
     Active Substance: ABACAVIR SULFATE
     Dosage: 300 MG, QD
     Route: 048
  2. TRUVADA [Suspect]
     Active Substance: EMTRICITABINE\TENOFOVIR DISOPROXIL FUMARATE
     Indication: HIV INFECTION
     Dosage: UNK
     Route: 048
     Dates: start: 2013, end: 2017
  3. MEPRON [Concomitant]
     Active Substance: ATOVAQUONE
     Dosage: 750 MG, QD
  4. REYATAZ [Concomitant]
     Active Substance: ATAZANAVIR SULFATE
     Dosage: 300 MG, QD
     Route: 048
  5. NORVIR [Concomitant]
     Active Substance: RITONAVIR
     Dosage: 100 MG, QD
  6. DORAVIRINE [Concomitant]
     Active Substance: DORAVIRINE
     Dosage: 100 MG, QD
  7. TRUVADA [Suspect]
     Active Substance: EMTRICITABINE\TENOFOVIR DISOPROXIL FUMARATE
     Dosage: UNK
     Route: 048
     Dates: start: 2010, end: 2015

REACTIONS (9)
  - Economic problem [Unknown]
  - Chronic kidney disease [Not Recovered/Not Resolved]
  - Anaemia [Unknown]
  - Nephropathy [Unknown]
  - Pain [Unknown]
  - Acute kidney injury [Unknown]
  - Emotional distress [Unknown]
  - Anhedonia [Unknown]
  - Anxiety [Unknown]

NARRATIVE: CASE EVENT DATE: 2019
